FAERS Safety Report 10036455 (Version 3)
Quarter: 2015Q2

REPORT INFORMATION
  Report Type: Spontaneous
  Country: FR (occurrence: FR)
  Receive Date: 20140326
  Receipt Date: 20150626
  Transmission Date: 20150821
  Serious: Yes (Hospitalization, Other)
  Sender: FDA-Public Use
  Company Number: FR-UCBSA-114795

PATIENT
  Sex: Male

DRUGS (5)
  1. KEPPRA [Suspect]
     Active Substance: LEVETIRACETAM
     Indication: EPILEPSY
     Dosage: 500 MG
     Route: 048
     Dates: start: 201106, end: 2013
  2. IMOVANE [Concomitant]
     Active Substance: ZOPICLONE
     Route: 048
     Dates: end: 201401
  3. KEPPRA [Suspect]
     Active Substance: LEVETIRACETAM
     Dosage: 500 MG
     Route: 048
     Dates: start: 2013, end: 2013
  4. CRESTOR [Concomitant]
     Active Substance: ROSUVASTATIN CALCIUM
     Dosage: 5 MG
     Route: 048
     Dates: end: 201401
  5. KEPPRA [Suspect]
     Active Substance: LEVETIRACETAM
     Dosage: DOUBLE DOSE
     Route: 048
     Dates: start: 2013, end: 201401

REACTIONS (6)
  - Sleep disorder [Unknown]
  - Toxicity to various agents [Unknown]
  - Suicidal ideation [Unknown]
  - Hypomania [Recovered/Resolved]
  - Suicide attempt [Recovered/Resolved]
  - Epilepsy [Unknown]

NARRATIVE: CASE EVENT DATE: 2011
